FAERS Safety Report 8803037 (Version 1)
Quarter: 2012Q4

REPORT INFORMATION
  Report Type: 
  Country: US (occurrence: US)
  Receive Date: 20120924
  Receipt Date: 20120924
  Transmission Date: 20130627
  Serious: Yes (Life-Threatening, Hospitalization)
  Sender: FDA-Public Use
  Company Number: US-BAYER-2012-097587

PATIENT
  Age: 33 Year
  Sex: Female
  Weight: 68.03 kg

DRUGS (20)
  1. YAZ [Suspect]
     Indication: CONTRACEPTION
     Dosage: UNK
     Dates: start: 200912, end: 20101231
  2. ANTIBIOTICS [Concomitant]
     Dosage: UNK
     Dates: start: 2010, end: 2011
  3. ASCORBIC ACID [Concomitant]
     Dosage: UNK
     Dates: start: 2010
  4. NSAID^S [Concomitant]
  5. SULFAMETHOXAZOLE [Concomitant]
     Dosage: 1 tablet, BID for 7 days.
     Route: 048
  6. CYCLOBENZAPRINE [Concomitant]
     Dosage: UNK
     Dates: start: 20101215
  7. IBUPROFEN [Concomitant]
  8. DEXILANT [Concomitant]
  9. PRILOSEC [Concomitant]
  10. VECURONIUM [Concomitant]
  11. INSULIN [Concomitant]
  12. VASOPRESSIN [Concomitant]
  13. NOREPINEPHRINE [Concomitant]
  14. DOPAMINE [Concomitant]
  15. FENTANYL [Concomitant]
  16. MIDAZOLAM [Concomitant]
     Indication: BLOOD PRESSURE MANAGEMENT
  17. OXYCODONE [Concomitant]
  18. FAMOTIDINE [Concomitant]
  19. PROPOFOL [Concomitant]
  20. DEXMEDETOMIDINE [Concomitant]

REACTIONS (8)
  - Pulmonary embolism [None]
  - Cardiac arrest [None]
  - Deep vein thrombosis [None]
  - Injury [None]
  - Stress [None]
  - Fear [None]
  - Anxiety [None]
  - Oedema peripheral [None]
